FAERS Safety Report 12836584 (Version 2)
Quarter: 2016Q4

REPORT INFORMATION
  Report Type: Report from Study
  Country: US (occurrence: US)
  Receive Date: 20161011
  Receipt Date: 20161201
  Transmission Date: 20170207
  Serious: Yes (Hospitalization, Other)
  Sender: FDA-Public Use
  Company Number: US-B.I. PHARMACEUTICALS,INC./RIDGEFIELD-2016-BI-22217BI

PATIENT
  Age: 71 Year
  Sex: Male
  Weight: 55 kg

DRUGS (19)
  1. DABIGATRAN [Suspect]
     Active Substance: DABIGATRAN
     Indication: ATRIAL FIBRILLATION
     Route: 048
  2. LISINOPRIL. [Concomitant]
     Active Substance: LISINOPRIL
     Indication: CARDIAC FAILURE CONGESTIVE
     Route: 048
     Dates: start: 20160328, end: 20160402
  3. ASA [Concomitant]
     Active Substance: ASPIRIN
     Indication: HYPERTENSION
     Dosage: DOSE PER APP: HALF TABLET
     Route: 065
  4. COUMADIN [Concomitant]
     Active Substance: WARFARIN SODIUM
     Indication: CARDIAC VENTRICULAR THROMBOSIS
     Route: 048
     Dates: start: 20160404
  5. NIFEDIPINE. [Concomitant]
     Active Substance: NIFEDIPINE
     Indication: HYPERTENSION
     Route: 048
  6. METOPROLOL. [Concomitant]
     Active Substance: METOPROLOL
     Indication: HYPERTENSION
     Route: 048
  7. COUMADIN [Concomitant]
     Active Substance: WARFARIN SODIUM
     Indication: ATRIAL FIBRILLATION
     Route: 048
     Dates: start: 20160328, end: 20160402
  8. TOPROL XL [Concomitant]
     Active Substance: METOPROLOL SUCCINATE
     Dosage: EXTENDED RELEASE (XL)
     Route: 048
     Dates: start: 20160408
  9. GLIBENCLAMIDE [Concomitant]
     Active Substance: GLYBURIDE
     Indication: TYPE 2 DIABETES MELLITUS
     Route: 048
  10. TOPROL XL [Concomitant]
     Active Substance: METOPROLOL SUCCINATE
     Indication: CARDIAC FAILURE CONGESTIVE
     Dosage: EXTENDED RELEASE (XL)
     Route: 048
     Dates: start: 20160328, end: 20160402
  11. HYDROCORTISONE. [Concomitant]
     Active Substance: HYDROCORTISONE
     Indication: RENAL ISCHAEMIA
     Route: 048
     Dates: start: 20160328
  12. ISOSORBIDE. [Concomitant]
     Active Substance: ISOSORBIDE
     Indication: HYPERTENSION
     Route: 065
  13. LISINOPRIL. [Concomitant]
     Active Substance: LISINOPRIL
     Route: 048
     Dates: start: 20160408
  14. LASIX [Concomitant]
     Active Substance: FUROSEMIDE
     Indication: CARDIAC FAILURE CONGESTIVE
     Route: 048
     Dates: start: 20160328, end: 20160404
  15. LASIX [Concomitant]
     Active Substance: FUROSEMIDE
     Route: 048
     Dates: start: 20160409
  16. PLAVIX [Concomitant]
     Active Substance: CLOPIDOGREL BISULFATE
     Indication: CORONARY ARTERY DISEASE
     Route: 048
     Dates: start: 20160328, end: 20160402
  17. PLAVIX [Concomitant]
     Active Substance: CLOPIDOGREL BISULFATE
     Route: 048
     Dates: start: 20160405
  18. FLOMAX [Concomitant]
     Active Substance: TAMSULOSIN HYDROCHLORIDE
     Indication: URINARY RETENTION
     Route: 048
     Dates: start: 20160705, end: 20160706
  19. NACL [Concomitant]
     Active Substance: SODIUM CHLORIDE
     Indication: DEHYDRATION
     Route: 042
     Dates: start: 20160705, end: 20160706

REACTIONS (9)
  - Urinary tract infection [Recovered/Resolved]
  - Acute kidney injury [Not Recovered/Not Resolved]
  - Back pain [Not Recovered/Not Resolved]
  - Acute kidney injury [Recovered/Resolved]
  - Hydronephrosis [Recovered/Resolved]
  - Osteomyelitis [Not Recovered/Not Resolved]
  - Adrenal insufficiency [Recovered/Resolved]
  - Nephrolithiasis [Recovered/Resolved]
  - Pneumonia [Recovered/Resolved]

NARRATIVE: CASE EVENT DATE: 20160404
